FAERS Safety Report 5888013-4 (Version None)
Quarter: 2008Q3

REPORT INFORMATION
  Report Type: 
  Country: None (occurrence: None)
  Receive Date: 20080918
  Receipt Date: 20080910
  Transmission Date: 20090109
  Serious: Yes (Hospitalization)
  Sender: FDA-Public Use
  Company Number: US-GENENTECH-267942

PATIENT
  Sex: Male
  Weight: 12.245 kg

DRUGS (9)
  1. RITUXAN [Suspect]
     Indication: OPSOCLONUS MYOCLONUS
     Dosage: 750 MG/M2, Q2W
     Route: 042
     Dates: start: 20080818
  2. ACTH [Concomitant]
     Indication: DRUG USE FOR UNKNOWN INDICATION
  3. VENOGLOBULIN [Concomitant]
     Indication: DRUG USE FOR UNKNOWN INDICATION
  4. PEPCID [Concomitant]
     Indication: DRUG USE FOR UNKNOWN INDICATION
  5. CALCIUM CARBONATE [Concomitant]
     Indication: DRUG USE FOR UNKNOWN INDICATION
  6. ERGOCALCIFEROL [Concomitant]
     Indication: DRUG USE FOR UNKNOWN INDICATION
  7. TRAZODONE HCL [Concomitant]
     Indication: DRUG USE FOR UNKNOWN INDICATION
  8. BACTRIM DS [Concomitant]
     Indication: DRUG USE FOR UNKNOWN INDICATION
  9. TYLENOL (CAPLET) [Concomitant]
     Indication: DRUG USE FOR UNKNOWN INDICATION

REACTIONS (2)
  - DIARRHOEA [None]
  - PYREXIA [None]
